FAERS Safety Report 9964933 (Version 2)
Quarter: 2014Q1

REPORT INFORMATION
  Report Type: Spontaneous
  Country: US (occurrence: US)
  Receive Date: 20140305
  Receipt Date: 20140305
  Transmission Date: 20141002
  Serious: Yes (Other)
  Sender: FDA-Public Use
  Company Number: PHHY2014US021139

PATIENT
  Age: 70 Year
  Sex: Female

DRUGS (13)
  1. BACLOFEN INTRATHECAL [Suspect]
     Indication: MUSCLE SPASMS
     Dosage: 357.4 UG/DAY
     Route: 037
     Dates: start: 20090728
  2. BACLOFEN [Suspect]
     Dosage: 10 MG, BID
     Route: 048
  3. SIMVASTATIN [Suspect]
     Dosage: UNK UKN, UNK
  4. DURAGESIC [Suspect]
     Dosage: 150 UG/HR, (1 PATCH EVERY 48 HOURS)
  5. KLONOPIN [Suspect]
     Dosage: 0.5 DF, BID (1 MG)
  6. LEVOXYL [Suspect]
     Dosage: 200 UG, UNK
  7. LEXAPRO [Suspect]
     Dosage: UNK UKN, UNK
  8. MACROBID [Suspect]
     Dosage: UNK UKN, UNK
  9. NEURONTIN [Suspect]
     Dosage: UNK UKN, UNK
  10. OXYCODONE [Suspect]
     Dosage: 10/325
  11. PEPCID [Suspect]
     Dosage: UNK UKN, UNK
  12. PROBIOTICS [Suspect]
     Dosage: UNK UKN, UNK
  13. SKELAXIN [Suspect]
     Dosage: UNK UKN, UNK

REACTIONS (6)
  - Urinary tract infection [Unknown]
  - Implant site pain [Unknown]
  - Muscle spasms [Unknown]
  - Muscle tightness [Unknown]
  - Musculoskeletal stiffness [Unknown]
  - Therapeutic response decreased [Unknown]
